FAERS Safety Report 22371885 (Version 1)
Quarter: 2023Q2

REPORT INFORMATION
  Report Type: Spontaneous
  Country: US (occurrence: US)
  Receive Date: 20230526
  Receipt Date: 20230526
  Transmission Date: 20230721
  Serious: No
  Sender: FDA-Public Use
  Company Number: US-PFIZER INC-202300200435

PATIENT
  Sex: Male

DRUGS (3)
  1. OXBRYTA [Suspect]
     Active Substance: VOXELOTOR
     Dosage: 500 MG [500 MG FOR 3 DAYS, 1000 MG FOR 3 DAYS AND 1500 MG WAS THE END]
  2. OXBRYTA [Suspect]
     Active Substance: VOXELOTOR
     Dosage: 1000 MG [500 MG FOR 3 DAYS, 1000 MG FOR 3 DAYS AND 1500 MG WAS THE END]
  3. OXBRYTA [Suspect]
     Active Substance: VOXELOTOR
     Dosage: 1500 MG [500 MG FOR 3 DAYS, 1000 MG FOR 3 DAYS AND 1500 MG WAS THE END]

REACTIONS (4)
  - Off label use [Unknown]
  - Pyrexia [Unknown]
  - Rash [Unknown]
  - Swelling face [Unknown]
